FAERS Safety Report 15910908 (Version 1)
Quarter: 2019Q1

REPORT INFORMATION
  Report Type: Spontaneous
  Country: US (occurrence: US)
  Receive Date: 20190204
  Receipt Date: 20190204
  Transmission Date: 20190417
  Serious: No
  Sender: FDA-Public Use
  Company Number: US-ABBVIE-18K-163-2368614-00

PATIENT
  Sex: Female

DRUGS (1)
  1. HUMIRA [Suspect]
     Active Substance: ADALIMUMAB
     Indication: RHEUMATOID ARTHRITIS
     Route: 058
     Dates: start: 201408, end: 20170830

REACTIONS (4)
  - Drug ineffective [Unknown]
  - Joint swelling [Recovering/Resolving]
  - Musculoskeletal stiffness [Recovering/Resolving]
  - Arthralgia [Recovering/Resolving]
